FAERS Safety Report 8302269-X (Version None)
Quarter: 2012Q2

REPORT INFORMATION
  Report Type: 
  Country: None (occurrence: None)
  Receive Date: 20120418
  Receipt Date: 20120418
  Transmission Date: 20120825
  Serious: No
  Sender: FDA-Public Use
  Company Number: None

PATIENT
  Age: 79 Year
  Sex: Male
  Weight: 105.8 kg

DRUGS (1)
  1. HYDROPHILIC OINTMENT [Suspect]
     Dosage: PRN TOP
     Route: 061
     Dates: start: 20120108, end: 20120110

REACTIONS (7)
  - URTICARIA [None]
  - PRURITUS [None]
  - PRODUCT SUBSTITUTION ISSUE [None]
  - EXFOLIATIVE RASH [None]
  - RASH ERYTHEMATOUS [None]
  - DRUG INTOLERANCE [None]
  - DRUG LABEL CONFUSION [None]
